FAERS Safety Report 4368722-9 (Version None)
Quarter: 2004Q2

REPORT INFORMATION
  Report Type: 
  Country: None (occurrence: None)
  Receive Date: 20040525
  Receipt Date: 20040512
  Transmission Date: 20050107
  Serious: Yes (Hospitalization)
  Sender: FDA-Public Use
  Company Number: 2004194854DE

PATIENT
  Age: 41 Year
  Sex: Male

DRUGS (8)
  1. SOMAVERT [Suspect]
     Indication: ACROMEGALY
     Dosage: 10 MG EVERY SECOND DAY, SUBCUTANEOUS; 10 MG, QD, SUBCUTANEOUS; 40 MG, QD, SUBCUTANEOUS; 10 MG, QD, S
     Route: 058
     Dates: end: 20031229
  2. SOMAVERT [Suspect]
     Indication: ACROMEGALY
     Dosage: 10 MG EVERY SECOND DAY, SUBCUTANEOUS; 10 MG, QD, SUBCUTANEOUS; 40 MG, QD, SUBCUTANEOUS; 10 MG, QD, S
     Route: 058
     Dates: start: 20040313, end: 20040428
  3. SOMAVERT [Suspect]
     Indication: ACROMEGALY
     Dosage: 10 MG EVERY SECOND DAY, SUBCUTANEOUS; 10 MG, QD, SUBCUTANEOUS; 40 MG, QD, SUBCUTANEOUS; 10 MG, QD, S
     Route: 058
     Dates: start: 20030911
  4. SOMAVERT [Suspect]
     Indication: ACROMEGALY
     Dosage: 10 MG EVERY SECOND DAY, SUBCUTANEOUS; 10 MG, QD, SUBCUTANEOUS; 40 MG, QD, SUBCUTANEOUS; 10 MG, QD, S
     Route: 058
     Dates: start: 20040428
  5. SANDOSTATIN [Concomitant]
  6. PRAVIDEL [Concomitant]
  7. METOBETA [Concomitant]
  8. TESTOSTERONE [Concomitant]

REACTIONS (6)
  - BILE DUCT OBSTRUCTION [None]
  - BILIARY COLIC [None]
  - CHOLELITHIASIS [None]
  - DIVERTICULUM [None]
  - GALLBLADDER DISORDER [None]
  - HEPATOCELLULAR DAMAGE [None]
